FAERS Safety Report 11047226 (Version 1)
Quarter: 2015Q2

REPORT INFORMATION
  Report Type: Spontaneous
  Country: US (occurrence: US)
  Receive Date: 20150420
  Receipt Date: 20150420
  Transmission Date: 20150821
  Serious: Yes (Other)
  Sender: FDA-Public Use
  Company Number: US-B.I. PHARMACEUTICALS,INC./RIDGEFIELD-2015-BI-18870BP

PATIENT
  Sex: Male

DRUGS (1)
  1. MIRAPEX [Suspect]
     Active Substance: PRAMIPEXOLE DIHYDROCHLORIDE
     Indication: RESTLESS LEGS SYNDROME
     Route: 065

REACTIONS (10)
  - Blood pressure increased [Recovered/Resolved]
  - Oedema peripheral [Recovered/Resolved]
  - Restlessness [Recovered/Resolved]
  - Gambling [Recovered/Resolved]
  - Insomnia [Recovered/Resolved]
  - Abnormal behaviour [Unknown]
  - Weight increased [Recovered/Resolved]
  - Somnolence [Recovered/Resolved]
  - Seizure [Unknown]
  - Mood swings [Recovered/Resolved]
